FAERS Safety Report 7482287-4 (Version None)
Quarter: 2011Q2

REPORT INFORMATION
  Report Type: 
  Country: None (occurrence: None)
  Receive Date: 20110516
  Receipt Date: 20110509
  Transmission Date: 20111010
  Serious: No
  Sender: FDA-Public Use
  Company Number: US-PFIZER INC-2011099902

PATIENT
  Sex: Male

DRUGS (4)
  1. TRAZODONE [Concomitant]
     Dosage: UNK
  2. WELLBUTRIN [Concomitant]
     Dosage: UNK
  3. LYRICA [Suspect]
     Indication: FIBROMYALGIA
     Dosage: 50 MG, 1X/DAY
     Dates: start: 20110401, end: 20110501
  4. ABILIFY [Concomitant]
     Dosage: UNK

REACTIONS (1)
  - PENILE DISCHARGE [None]
